FAERS Safety Report 7419456-5 (Version None)
Quarter: 2011Q1

REPORT INFORMATION
  Report Type: 
  Country: None (occurrence: None)
  Receive Date: 20110302
  Receipt Date: 20101223
  Transmission Date: 20110831
  Serious: No
  Sender: FDA-Public Use
  Company Number: 021807

PATIENT
  Sex: Male
  Weight: 122 kg

DRUGS (18)
  1. POTASSIUM CITRATE [Concomitant]
  2. LYRICA [Concomitant]
  3. PREDNISONE [Concomitant]
  4. VITAMIN B12 /00260201/ [Concomitant]
  5. CIMZIA [Suspect]
     Indication: RHEUMATOID ARTHRITIS
     Dosage: SEE IMAGE
     Route: 058
     Dates: start: 20101001, end: 20101104
  6. CIMZIA [Suspect]
     Indication: CROHN'S DISEASE
     Dosage: SEE IMAGE
     Route: 058
     Dates: start: 20101001, end: 20101104
  7. CIMZIA [Suspect]
     Indication: RHEUMATOID ARTHRITIS
     Dosage: SEE IMAGE
     Route: 058
     Dates: start: 20101104
  8. CIMZIA [Suspect]
     Indication: CROHN'S DISEASE
     Dosage: SEE IMAGE
     Route: 058
     Dates: start: 20101104
  9. CIMZIA [Suspect]
     Indication: RHEUMATOID ARTHRITIS
     Dosage: SEE IMAGE
     Route: 058
     Dates: start: 20090101
  10. CIMZIA [Suspect]
     Indication: CROHN'S DISEASE
     Dosage: SEE IMAGE
     Route: 058
     Dates: start: 20090101
  11. CIMZIA [Suspect]
     Indication: RHEUMATOID ARTHRITIS
     Dosage: SEE IMAGE
     Route: 058
     Dates: start: 20100501
  12. CIMZIA [Suspect]
     Indication: CROHN'S DISEASE
     Dosage: SEE IMAGE
     Route: 058
     Dates: start: 20100501
  13. ALLOPURINOL [Concomitant]
  14. CIMZIA [Suspect]
  15. TRICOR [Concomitant]
  16. VICODIN [Concomitant]
  17. ASPIRIN [Concomitant]
  18. ATENOLOL [Concomitant]

REACTIONS (7)
  - UPPER RESPIRATORY TRACT INFLAMMATION [None]
  - DYSPHAGIA [None]
  - THROAT IRRITATION [None]
  - FATIGUE [None]
  - ABDOMINAL PAIN UPPER [None]
  - CROHN'S DISEASE [None]
  - PHARYNGITIS STREPTOCOCCAL [None]
